FAERS Safety Report 4511835-9 (Version None)
Quarter: 2004Q4

REPORT INFORMATION
  Report Type: 
  Country: None (occurrence: None)
  Receive Date: 20041129
  Receipt Date: 20041027
  Transmission Date: 20050328
  Serious: No
  Sender: FDA-Public Use
  Company Number: JP-MERCK-0411USA00112B1

PATIENT

DRUGS (2)
  1. ALDOMET [Suspect]
  2. ALDOMET [Suspect]

REACTIONS (4)
  - CAESAREAN SECTION [None]
  - CONGENITAL CYTOMEGALOVIRUS INFECTION [None]
  - DRUG EXPOSURE DURING PREGNANCY [None]
  - PAROTITIS [None]
